FAERS Safety Report 8613125-1 (Version None)
Quarter: 2012Q3

REPORT INFORMATION
  Report Type: 
  Country: None (occurrence: None)
  Receive Date: 20120822
  Receipt Date: 20120730
  Transmission Date: 20120928
  Serious: Yes (Hospitalization)
  Sender: FDA-Public Use
  Company Number: JP-009507513-2012SP011754

PATIENT

DRUGS (1)
  1. FARESTON [Suspect]
     Dosage: 40 MG, QD
     Route: 048
     Dates: start: 20111128

REACTIONS (1)
  - HEPATITIS ACUTE [None]
